FAERS Safety Report 8746545 (Version 5)
Quarter: 2014Q1

REPORT INFORMATION
  Report Type: Spontaneous
  Country: US (occurrence: US)
  Receive Date: 20120827
  Receipt Date: 20140326
  Transmission Date: 20141002
  Serious: Yes (Disabling, Other)
  Sender: FDA-Public Use
  Company Number: US-009507513-1208USA009469

PATIENT
  Sex: Female

DRUGS (4)
  1. FOSAMAX [Suspect]
     Indication: OSTEOPOROSIS
     Dosage: UNK, QW
     Route: 048
  2. FOSAMAX [Suspect]
     Indication: OSTEOPOROSIS
     Route: 048
  3. FOSAMAX [Suspect]
     Indication: OSTEOPOROSIS PROPHYLAXIS
  4. CALCIUM (UNSPECIFIED) [Concomitant]
     Dosage: 1500 MG, UNK
     Dates: start: 1995

REACTIONS (21)
  - Femur fracture [Not Recovered/Not Resolved]
  - Surgery [Not Recovered/Not Resolved]
  - Low turnover osteopathy [Not Recovered/Not Resolved]
  - Osteoporosis [Not Recovered/Not Resolved]
  - Stress fracture [Not Recovered/Not Resolved]
  - Femur fracture [Not Recovered/Not Resolved]
  - Pancytopenia [Unknown]
  - Medical device removal [Unknown]
  - Non-Hodgkin^s lymphoma [Not Recovered/Not Resolved]
  - Hip arthroplasty [Unknown]
  - Osteonecrosis [Unknown]
  - Medical device pain [Unknown]
  - Tooth extraction [Unknown]
  - Depression [Unknown]
  - Anxiety [Unknown]
  - Adverse drug reaction [Unknown]
  - Autoimmune disorder [Unknown]
  - Blood count abnormal [Unknown]
  - Adverse event [Unknown]
  - Adverse event [Unknown]
  - Radiotherapy [Unknown]
